FAERS Safety Report 6303781-5 (Version None)
Quarter: 2009Q3

REPORT INFORMATION
  Report Type: 
  Country: None (occurrence: None)
  Receive Date: 20090805
  Receipt Date: 20090728
  Transmission Date: 20100115
  Serious: Yes (Hospitalization)
  Sender: FDA-Public Use
  Company Number: LTI2009A00219

PATIENT
  Age: 81 Year
  Sex: Female

DRUGS (6)
  1. ACTOS [Suspect]
     Indication: TYPE 2 DIABETES MELLITUS
     Dosage: 15 MG (15 MG,1 - 2) ORAL
     Route: 048
  2. GLICLAZIDE (GLICLAZIDE) [Suspect]
     Indication: TYPE 2 DIABETES MELLITUS
     Dosage: 120 MG ORAL
     Route: 048
  3. VASTAREL (TRIMETAZIDINE HYDROCHLORIDE) [Concomitant]
  4. ALTIZIDE / SPIRONOLACTONE (SPIRONOLACTONE, ALTIZIDE) [Concomitant]
  5. SPASFON (PHLOROGLUCINOL, TRIMETHYLPHLOROGLUCINOL) [Concomitant]
  6. LORAZEPAM [Concomitant]

REACTIONS (4)
  - DRUG INTERACTION [None]
  - DYSSTASIA [None]
  - HYPOGLYCAEMIA [None]
  - MONOPARESIS [None]
